FAERS Safety Report 8445370-2 (Version None)
Quarter: 2012Q2

REPORT INFORMATION
  Report Type: 
  Country: None (occurrence: None)
  Receive Date: 20120323
  Receipt Date: 20111027
  Transmission Date: 20120825
  Serious: Yes (Other)
  Sender: FDA-Public Use
  Company Number: 163-21880-11110016

PATIENT
  Age: 62 Year
  Sex: Female

DRUGS (14)
  1. REVLIMID [Suspect]
     Indication: MULTIPLE MYELOMA
     Dosage: 25 MG, QD X 21D/28D, PO
     Route: 048
     Dates: start: 20110928
  2. VICODIN [Concomitant]
  3. METHADONE HCL [Concomitant]
  4. PROCRIT [Concomitant]
  5. K-TAB [Concomitant]
  6. LEVOTHROID [Concomitant]
  7. ZOFRAN [Concomitant]
  8. DAILY-VITE [Concomitant]
  9. PRILOSEC [Concomitant]
  10. VELCADE [Concomitant]
  11. ZOVIRAX [Concomitant]
  12. COUMADIN [Concomitant]
  13. REVLIMID [Suspect]
     Indication: MULTIPLE MYELOMA
     Dosage: 25 MG, QD X 21D/28D, PO
     Route: 048
     Dates: start: 20111027
  14. ATIVAN [Concomitant]

REACTIONS (2)
  - HAEMOGLOBIN DECREASED [None]
  - NEUTROPHIL COUNT DECREASED [None]
